FAERS Safety Report 4510203-3 (Version None)
Quarter: 2004Q4

REPORT INFORMATION
  Report Type: 
  Country: None (occurrence: None)
  Receive Date: 20041119
  Receipt Date: 20041019
  Transmission Date: 20050328
  Serious: Yes (Hospitalization)
  Sender: FDA-Public Use
  Company Number: EWC041141285

PATIENT
  Age: 57 Year
  Sex: Male
  Weight: 90 kg

DRUGS (8)
  1. HUMATROPE [Suspect]
     Indication: GROWTH HORMONE DEFICIENCY
     Dosage: 2 MG/1 DAY
     Dates: start: 19991201, end: 20040928
  2. HYDROCORTISONE [Concomitant]
  3. THYRAX (LEVOTHYROXINE SODIUM) [Concomitant]
  4. SUSTANON [Concomitant]
  5. SELOKEEN (METOPROLOL TARTRATE) [Concomitant]
  6. PANTOZOL (PANTOPRAZOLE SODIUM) [Concomitant]
  7. ASCAL CARDIO (CARBASALATE CALCIUM) [Concomitant]
  8. ZOCOR (SIMVASTATIN RATIOPHARM) [Concomitant]

REACTIONS (2)
  - NEOPLASM PROGRESSION [None]
  - PITUITARY TUMOUR BENIGN [None]
